FAERS Safety Report 16142145 (Version 2)
Quarter: 2019Q2

REPORT INFORMATION
  Report Type: Report from Study
  Country: US (occurrence: US)
  Receive Date: 20190401
  Receipt Date: 20190627
  Transmission Date: 20190711
  Serious: No
  Sender: FDA-Public Use
  Company Number: US-SA-2019SA082514

PATIENT
  Age: 68 Year
  Sex: Female

DRUGS (1)
  1. DUPILUMAB [Suspect]
     Active Substance: DUPILUMAB
     Indication: DERMATITIS ATOPIC
     Dosage: 300 MG, QOW
     Route: 058
     Dates: start: 201901

REACTIONS (4)
  - Psoriasis [Unknown]
  - Dry skin [Unknown]
  - Pigmentation disorder [Unknown]
  - Rash [Unknown]

NARRATIVE: CASE EVENT DATE: 20190322
